FAERS Safety Report 4594469-X (Version None)
Quarter: 2005Q1

REPORT INFORMATION
  Report Type: 
  Country: None (occurrence: None)
  Receive Date: 20050301
  Receipt Date: 20040316
  Transmission Date: 20050727
  Serious: No
  Sender: FDA-Public Use
  Company Number: S2004US02903

PATIENT
  Sex: Female

DRUGS (1)
  1. VALTREX [Suspect]
     Indication: DRUG USE FOR UNKNOWN INDICATION
     Route: 048

REACTIONS (3)
  - FEELING ABNORMAL [None]
  - MOOD ALTERED [None]
  - PYREXIA [None]
